FAERS Safety Report 24318449 (Version 4)
Quarter: 2025Q1

REPORT INFORMATION
  Report Type: Spontaneous
  Country: US (occurrence: US)
  Receive Date: 20240913
  Receipt Date: 20250123
  Transmission Date: 20250409
  Serious: No
  Sender: AMGEN
  Company Number: US-AMGEN-USASP2024181986

PATIENT
  Age: 52 Year
  Sex: Male
  Weight: 86.168 kg

DRUGS (16)
  1. TEPEZZA [Suspect]
     Active Substance: TEPROTUMUMAB-TRBW
     Indication: Endocrine ophthalmopathy
     Dosage: 1400 MILLIGRAM, Q3WK (INFUSE IV OVER 60 MINUTES EVERY 3 WEEKS FOR A TOTAL OF 8 DOSES) (500 MG)
     Route: 042
     Dates: start: 20230328
  2. TEPEZZA [Suspect]
     Active Substance: TEPROTUMUMAB-TRBW
     Indication: Toxic goitre
     Dosage: 1720 MILLIGRAM, Q3WK, INFUSE 20 MG/KG (1720 MG) INTRAVENOUSLY OVER 90 MINUTES (67 ML/HR) VIA GRAVITY
     Route: 040
  3. TEPEZZA [Suspect]
     Active Substance: TEPROTUMUMAB-TRBW
     Dosage: 1720 MILLIGRAM, Q3WK
     Route: 040
  4. LOSARTAN [Concomitant]
     Active Substance: LOSARTAN
  5. VALACYCLOVIR HYDROCHLORIDE [Concomitant]
     Active Substance: VALACYCLOVIR HYDROCHLORIDE
  6. IBUPROFEN [Concomitant]
     Active Substance: IBUPROFEN
  7. SYNTHROID [Concomitant]
     Active Substance: LEVOTHYROXINE SODIUM
  8. DORZOLAMIDE\TIMOLOL [Concomitant]
     Active Substance: DORZOLAMIDE\TIMOLOL
  9. LATANOPROST [Concomitant]
     Active Substance: LATANOPROST
  10. EPINEPHRINE [Concomitant]
     Active Substance: EPINEPHRINE
  11. DIPHENHYDRAMINE HYDROCHLORIDE [Concomitant]
     Active Substance: DIPHENHYDRAMINE HYDROCHLORIDE
  12. SODIUM CHLORIDE [Concomitant]
     Active Substance: SODIUM CHLORIDE
  13. STERILE WATER [Concomitant]
     Active Substance: WATER
  14. SODIUM CHLORIDE [Concomitant]
     Active Substance: SODIUM CHLORIDE
  15. BRIMONIDINE TARTRATE\TIMOLOL MALEATE [Concomitant]
     Active Substance: BRIMONIDINE TARTRATE\TIMOLOL MALEATE
  16. HYDROCHLOROTHIAZIDE\LOSARTAN [Concomitant]
     Active Substance: HYDROCHLOROTHIAZIDE\LOSARTAN

REACTIONS (7)
  - Hypoacusis [Unknown]
  - Eye disorder [Not Recovered/Not Resolved]
  - Nasopharyngitis [Unknown]
  - Productive cough [Unknown]
  - Respiratory tract congestion [Unknown]
  - Malaise [Not Recovered/Not Resolved]
  - Pain [Unknown]

NARRATIVE: CASE EVENT DATE: 20241219
